FAERS Safety Report 21838093 (Version 1)
Quarter: 2023Q1

REPORT INFORMATION
  Report Type: 
  Country: None (occurrence: NP)
  Receive Date: 20230109
  Receipt Date: 20230109
  Transmission Date: 20230418
  Serious: Yes (Hospitalization, Other)
  Sender: FDA-Public Use
  Company Number: None

PATIENT
  Age: 22 Year
  Sex: Male

DRUGS (1)
  1. CIPROFLOXACIN HYDROCHLORIDE [Suspect]
     Active Substance: CIPROFLOXACIN HYDROCHLORIDE

REACTIONS (13)
  - Pruritus [Recovered/Resolved]
  - Rash vesicular [Recovered/Resolved]
  - Scleral discolouration [Recovered/Resolved]
  - Decreased appetite [Recovered/Resolved]
  - Acanthosis [Recovered/Resolved]
  - Epidermal necrosis [Recovered/Resolved]
  - Dermatitis [Recovered/Resolved]
  - Pigmentation disorder [Recovered/Resolved]
  - Lymphocytic infiltration [Recovered/Resolved]
  - Eosinophilic cellulitis [Recovered/Resolved]
  - Toxic epidermal necrolysis [Recovered/Resolved]
  - Toxic epidermal necrolysis [Recovered/Resolved]
  - Hepatitis cholestatic [Recovered/Resolved]
